FAERS Safety Report 8695180 (Version 2)
Quarter: 2013Q4

REPORT INFORMATION
  Report Type: Spontaneous
  Country: US (occurrence: US)
  Receive Date: 20120731
  Receipt Date: 20131105
  Transmission Date: 20140711
  Serious: Yes (Disabling, Other)
  Sender: FDA-Public Use
  Company Number: US-009507513-1207USA010804

PATIENT
  Age: 82 Year
  Sex: Male

DRUGS (13)
  1. ZOCOR [Suspect]
     Route: 048
  2. LEVAQUIN [Suspect]
  3. DALIRESP [Suspect]
     Route: 048
  4. CENTRUM SILVER [Concomitant]
  5. ALBUTEROL [Concomitant]
  6. FORADIL [Concomitant]
  7. ASCORBIC ACID [Concomitant]
  8. VITAMIN D (UNSPECIFIED) [Concomitant]
  9. VITAMIN E [Concomitant]
  10. ASMANEX TWISTHALER [Concomitant]
  11. ALLOPURINOL [Concomitant]
  12. ASPIRIN [Concomitant]
  13. SPIRIVA [Concomitant]

REACTIONS (8)
  - Weight decreased [Unknown]
  - Swelling face [Unknown]
  - Muscular weakness [Unknown]
  - Drug ineffective [Unknown]
  - Gastrooesophageal reflux disease [Unknown]
  - Frequent bowel movements [Unknown]
  - Oedema peripheral [Unknown]
  - Asthenia [Unknown]
